FAERS Safety Report 5566284-1 (Version None)
Quarter: 2007Q4

REPORT INFORMATION
  Report Type: 
  Country: None (occurrence: None)
  Receive Date: 20071213
  Receipt Date: 20071213
  Transmission Date: 20080405
  Serious: Yes (Hospitalization)
  Sender: FDA-Public Use
  Company Number: None

PATIENT
  Age: 53 Year
  Sex: Male

DRUGS (2)
  1. DILTIAZEM [Suspect]
     Indication: HYPERTENSION
     Dosage: 180MG EVERY DAY PO
     Route: 048
     Dates: start: 20071026, end: 20071119
  2. METOPROLOL [Suspect]
     Indication: HYPERTENSION
     Dosage: 50MG BID PO
     Route: 048
     Dates: start: 20071026, end: 20071119

REACTIONS (1)
  - BRADYCARDIA [None]
